FAERS Safety Report 7551350-1 (Version None)
Quarter: 2011Q2

REPORT INFORMATION
  Report Type: 
  Country: None (occurrence: None)
  Receive Date: 20110616
  Receipt Date: 20110609
  Transmission Date: 20111010
  Serious: Yes (Other)
  Sender: FDA-Public Use
  Company Number: NL-PFIZER INC-2011126819

PATIENT
  Age: 12 Year
  Sex: Female
  Weight: 71 kg

DRUGS (2)
  1. PROVERA [Suspect]
     Indication: AMENORRHOEA
     Dosage: 10 MG, UNK
     Dates: start: 20100701
  2. ETHINYL ESTRADIOL [Suspect]
     Indication: BONE DISORDER
     Dosage: 100 UG, 1X/DAY
     Dates: start: 20100701

REACTIONS (1)
  - CUSHINGOID [None]
